FAERS Safety Report 4393495-3 (Version None)
Quarter: 2004Q3

REPORT INFORMATION
  Report Type: 
  Country: None (occurrence: None)
  Receive Date: 20040706
  Receipt Date: 20040706
  Transmission Date: 20050211
  Serious: Yes (Hospitalization)
  Sender: FDA-Public Use
  Company Number: None

PATIENT
  Age: 74 Year
  Sex: Male
  Weight: 126.1 kg

DRUGS (2)
  1. WARFARIN SODIUM [Suspect]
     Indication: ATRIAL FIBRILLATION
     Dosage: 5MG PO QD
     Route: 048
  2. LEVOFLOXACIN [Suspect]
     Dosage: 500 MG PO QD
     Route: 048

REACTIONS (5)
  - ATRIAL FIBRILLATION [None]
  - DIARRHOEA [None]
  - DIZZINESS [None]
  - FREQUENT BOWEL MOVEMENTS [None]
  - GASTROINTESTINAL HAEMORRHAGE [None]
